FAERS Safety Report 25691138 (Version 1)
Quarter: 2025Q3

REPORT INFORMATION
  Report Type: Spontaneous
  Country: TR (occurrence: TR)
  Receive Date: 20250818
  Receipt Date: 20250818
  Transmission Date: 20251020
  Serious: Yes (Hospitalization, Other)
  Sender: INSUD PHARMA
  Company Number: TR-INSUD PHARMA-2508TR06604

PATIENT

DRUGS (3)
  1. TESTOSTERONE [Suspect]
     Active Substance: TESTOSTERONE
     Indication: Muscle building therapy
     Route: 065
     Dates: start: 2023
  2. BOLDENONE UNDECYLENATE [Suspect]
     Active Substance: BOLDENONE UNDECYLENATE
     Indication: Muscle building therapy
     Route: 065
     Dates: start: 2023
  3. OXANDROLONE [Suspect]
     Active Substance: OXANDROLONE
     Indication: Muscle building therapy
     Route: 065
     Dates: start: 2023

REACTIONS (4)
  - Hepatitis toxic [Recovering/Resolving]
  - Hepatotoxicity [Recovering/Resolving]
  - Yellow skin [Recovering/Resolving]
  - Nausea [Recovering/Resolving]

NARRATIVE: CASE EVENT DATE: 20230101
